FAERS Safety Report 6736552-6 (Version None)
Quarter: 2010Q2

REPORT INFORMATION
  Report Type: 
  Country: None (occurrence: None)
  Receive Date: 20100521
  Receipt Date: 20100511
  Transmission Date: 20101027
  Serious: Yes (Hospitalization, Other)
  Sender: FDA-Public Use
  Company Number: US-PERRIGO-08US009770

PATIENT
  Sex: Female
  Weight: 50.794 kg

DRUGS (4)
  1. NAPROXEN SODIUM 220 MG 490 [Suspect]
     Indication: ARTHRALGIA
     Dosage: 440 MG, SINGLE
     Route: 048
     Dates: start: 20080505, end: 20080505
  2. VYTORIN [Concomitant]
     Indication: HYPERCHOLESTEROLAEMIA
     Dosage: UNKNOWN
  3. LEVOTHROID [Concomitant]
     Indication: HYPOTHYROIDISM
     Dosage: UNKNOWN
     Dates: start: 20050101
  4. AVALIDE [Concomitant]
     Indication: HYPERTENSION
     Dosage: UNKNOWN
     Dates: start: 20060101

REACTIONS (19)
  - BLISTER [None]
  - DYSPNOEA [None]
  - FEELING HOT [None]
  - GENITAL PAIN [None]
  - INFLUENZA LIKE ILLNESS [None]
  - LACRIMATION INCREASED [None]
  - LIP HAEMORRHAGE [None]
  - LIP PAIN [None]
  - LIP SWELLING [None]
  - OCULAR DISCOMFORT [None]
  - OCULAR HYPERAEMIA [None]
  - PARAESTHESIA [None]
  - PHARYNGEAL OEDEMA [None]
  - PYREXIA [None]
  - RASH MACULAR [None]
  - SCAR [None]
  - SKIN EROSION [None]
  - SKIN EXFOLIATION [None]
  - VISION BLURRED [None]
